FAERS Safety Report 17527842 (Version 1)
Quarter: 2020Q1

REPORT INFORMATION
  Report Type: Spontaneous
  Country: IN (occurrence: IN)
  Receive Date: 20200311
  Receipt Date: 20200311
  Transmission Date: 20200409
  Serious: Yes (Death, Hospitalization, Other)
  Sender: FDA-Public Use
  Company Number: NVSC2020IN067437

PATIENT
  Age: 19 Year
  Sex: Female
  Weight: 29.9 kg

DRUGS (11)
  1. CLOFAZIMINE [Suspect]
     Active Substance: CLOFAZIMINE
     Indication: PULMONARY TUBERCULOSIS
     Dosage: 375 MG, QD
     Route: 065
     Dates: start: 20190822
  2. LINEZOLID. [Suspect]
     Active Substance: LINEZOLID
     Indication: PULMONARY TUBERCULOSIS
     Dosage: 600 MG, BID
     Route: 065
     Dates: start: 20190822
  3. ETHIONAMIDE [Suspect]
     Active Substance: ETHIONAMIDE
     Indication: PULMONARY TUBERCULOSIS
     Dosage: 500 MG, QD
     Route: 065
     Dates: start: 20190822
  4. IMIPENEM [Suspect]
     Active Substance: IMIPENEM
     Indication: PULMONARY TUBERCULOSIS
     Dosage: 1 G, BID
     Route: 065
     Dates: start: 20190822
  5. DELAMANID [Suspect]
     Active Substance: DELAMANID
     Indication: PULMONARY TUBERCULOSIS
     Dosage: 100 MG, BID
     Route: 065
     Dates: start: 20190819
  6. METOCLOPRAMIDE. [Concomitant]
     Active Substance: METOCLOPRAMIDE
     Indication: PRODUCT USED FOR UNKNOWN INDICATION
     Dosage: UNK
     Route: 065
     Dates: start: 20190822
  7. ONDANSETRON [Concomitant]
     Active Substance: ONDANSETRON
     Indication: VOMITING
     Dosage: UNK
     Route: 065
     Dates: start: 20190822
  8. AMOXCLAV [Suspect]
     Active Substance: AMOXICILLIN\CLAVULANIC ACID
     Indication: PULMONARY TUBERCULOSIS
     Dosage: 625 MG, BID
     Route: 065
     Dates: start: 20190822
  9. OMEPRAZOLE. [Concomitant]
     Active Substance: OMEPRAZOLE
     Indication: PRODUCT USED FOR UNKNOWN INDICATION
     Dosage: UNK
     Route: 065
     Dates: start: 20190822
  10. GLYCOPYRRONIUM;INDACATEROL [Concomitant]
     Indication: PRODUCT USED FOR UNKNOWN INDICATION
     Dosage: UNK
     Route: 065
     Dates: start: 20190822
  11. BEDAQUILINE [Suspect]
     Active Substance: BEDAQUILINE
     Indication: PULMONARY TUBERCULOSIS
     Dosage: 200 MG, TIW
     Route: 065
     Dates: start: 20190816

REACTIONS (5)
  - Dyspnoea [Unknown]
  - Death [Fatal]
  - Oxygen saturation decreased [Unknown]
  - Incorrect product administration duration [Unknown]
  - Sputum decreased [Unknown]

NARRATIVE: CASE EVENT DATE: 201910
